FAERS Safety Report 7543211-9 (Version None)
Quarter: 2011Q2

REPORT INFORMATION
  Report Type: 
  Country: None (occurrence: None)
  Receive Date: 20110613
  Receipt Date: 20110607
  Transmission Date: 20111010
  Serious: Yes (Other)
  Sender: FDA-Public Use
  Company Number: US-MERCK-1106USA00824B1

PATIENT
  Age: 0 Day
  Sex: Male

DRUGS (3)
  1. ZIDOVUDINE [Suspect]
     Dosage: 1. + 2.
     Route: 064
  2. ISENTRESS [Suspect]
     Dosage: 800.
     Route: 064
  3. EMTRICITABINE/TENOFOVIR DISOPROXIL FUMARATE [Suspect]
     Dosage: 1.
     Route: 064

REACTIONS (2)
  - DRUG EXPOSURE DURING PREGNANCY [None]
  - SMALL FOR DATES BABY [None]
